FAERS Safety Report 15106325 (Version 1)
Quarter: 2018Q3

REPORT INFORMATION
  Report Type: Report from Study
  Country: IT (occurrence: IT)
  Receive Date: 20180704
  Receipt Date: 20180704
  Transmission Date: 20181010
  Serious: Yes (Other)
  Sender: FDA-Public Use
  Company Number: IT-AUROBINDO-AUR-APL-2017-38267

PATIENT
  Age: 27 Year
  Sex: Female

DRUGS (9)
  1. DURACEF                            /00554701/ [Suspect]
     Active Substance: CEFADROXIL
     Indication: PRODUCT USED FOR UNKNOWN INDICATION
     Dosage: 2 MG/ML IN 0.9% SODIUM CHLORIDE
     Route: 023
  2. KEFORAL                            /00145501/ [Suspect]
     Active Substance: CEPHALEXIN
     Dosage: 5% IN PETROLATUM
     Route: 061
  3. KEFORAL                            /00145501/ [Suspect]
     Active Substance: CEPHALEXIN
     Indication: PRODUCT USED FOR UNKNOWN INDICATION
     Dosage: 2 MG/ML IN 0.9% SODIUM CHLORIDE
     Route: 023
  4. AMPICILLIN [Suspect]
     Active Substance: AMPICILLIN
     Indication: PRODUCT USED FOR UNKNOWN INDICATION
     Dosage: UNK
     Route: 065
  5. DURACEF                            /00554701/ [Suspect]
     Active Substance: CEFADROXIL
     Dosage: 5% IN PETROLATUM
     Route: 061
  6. PANACEF [Suspect]
     Active Substance: CEFACLOR
     Dosage: 5% IN PETROLATUM
     Route: 061
  7. AMOXICILLIN. [Suspect]
     Active Substance: AMOXICILLIN
     Indication: PRODUCT USED FOR UNKNOWN INDICATION
     Dosage: UNK
     Route: 065
  8. AMOXICILLIN. [Suspect]
     Active Substance: AMOXICILLIN
     Indication: PRODUCT USED FOR UNKNOWN INDICATION
  9. PANACEF [Suspect]
     Active Substance: CEFACLOR
     Indication: PRODUCT USED FOR UNKNOWN INDICATION
     Dosage: 2 MG/ML IN 0.9% SODIUM CHLORIDE
     Route: 023

REACTIONS (4)
  - Type IV hypersensitivity reaction [Unknown]
  - Erythema [Unknown]
  - Oedema [Unknown]
  - Therapeutic product cross-reactivity [Unknown]
